FAERS Safety Report 14926688 (Version 1)
Quarter: 2018Q2

REPORT INFORMATION
  Report Type: Spontaneous
  Country: US (occurrence: US)
  Receive Date: 20180523
  Receipt Date: 20180523
  Transmission Date: 20180711
  Serious: Yes (Other)
  Sender: FDA-Public Use
  Company Number: US-ZYDUS-020186

PATIENT
  Age: 59 Year
  Sex: Male

DRUGS (2)
  1. GLYCYRRHIZA GLABRA [Concomitant]
     Active Substance: GLYCYRRHIZA GLABRA
     Indication: PRODUCT USED FOR UNKNOWN INDICATION
     Route: 065
  2. ITRACONAZOLE. [Suspect]
     Active Substance: ITRACONAZOLE
     Indication: COCCIDIOIDOMYCOSIS
     Route: 048

REACTIONS (6)
  - Blood aldosterone decreased [Recovered/Resolved]
  - Blood potassium decreased [Recovered/Resolved]
  - Hypertension [Recovered/Resolved]
  - Oestradiol increased [Recovered/Resolved]
  - Apparent mineralocorticoid excess [Recovered/Resolved]
  - Renin decreased [Recovered/Resolved]
